FAERS Safety Report 23800569 (Version 1)
Quarter: 2024Q2

REPORT INFORMATION
  Report Type: Report from Study
  Country: US (occurrence: US)
  Receive Date: 20240430
  Receipt Date: 20240430
  Transmission Date: 20240716
  Serious: Yes (Hospitalization)
  Sender: FDA-Public Use
  Company Number: US-ABBVIE-5734394

PATIENT
  Age: 56 Year
  Sex: Male

DRUGS (1)
  1. RINVOQ [Suspect]
     Active Substance: UPADACITINIB
     Indication: Crohn^s disease
     Route: 048
     Dates: start: 20231006

REACTIONS (3)
  - Orchitis [Recovering/Resolving]
  - Cystitis noninfective [Recovering/Resolving]
  - Cystitis [Recovering/Resolving]

NARRATIVE: CASE EVENT DATE: 20240408
